FAERS Safety Report 8529393-0 (Version None)
Quarter: 2012Q2

REPORT INFORMATION
  Report Type: 
  Country: None (occurrence: None)
  Receive Date: 20120409
  Receipt Date: 20120223
  Transmission Date: 20120825
  Serious: Yes (Hospitalization)
  Sender: FDA-Public Use
  Company Number: 2012-003

PATIENT
  Age: 50 Year
  Sex: Female
  Weight: 81.6 kg

DRUGS (10)
  1. XALATAN [Concomitant]
  2. RISPERDAL CONSTA [Concomitant]
  3. FAZACLO ODT [Suspect]
     Indication: SCHIZOPHRENIA, PARANOID TYPE
     Dosage: 600;400;300;500 MG, QD, ORAL
     Route: 048
     Dates: start: 20110315, end: 20111203
  4. FAZACLO ODT [Suspect]
     Indication: SCHIZOPHRENIA, PARANOID TYPE
     Dosage: 600;400;300;500 MG, QD, ORAL
     Route: 048
     Dates: start: 20111203, end: 20111224
  5. FAZACLO ODT [Suspect]
     Indication: SCHIZOPHRENIA, PARANOID TYPE
     Dosage: 600;400;300;500 MG, QD, ORAL
     Route: 048
     Dates: start: 20100113, end: 20110303
  6. FAZACLO ODT [Suspect]
     Indication: SCHIZOPHRENIA, PARANOID TYPE
     Dosage: 600;400;300;500 MG, QD, ORAL
     Route: 048
     Dates: start: 20110303, end: 20110315
  7. ASPIRIN [Concomitant]
  8. METFFORMIN HYDROCHLORIDE [Concomitant]
  9. PRAVASTATIN [Concomitant]
  10. DIOVAN [Concomitant]

REACTIONS (1)
  - PSYCHOTIC DISORDER [None]
